FAERS Safety Report 15377473 (Version 1)
Quarter: 2018Q3

REPORT INFORMATION
  Report Type: Spontaneous
  Country: PL (occurrence: PL)
  Receive Date: 20180913
  Receipt Date: 20180913
  Transmission Date: 20181010
  Serious: Yes (Hospitalization, Other)
  Sender: FDA-Public Use
  Company Number: PL-SAKK-2018SA246665AA

PATIENT
  Age: 41 Year
  Sex: Female

DRUGS (3)
  1. INSULIN [Suspect]
     Active Substance: INSULIN NOS
     Dosage: 1800 IU
  2. INSULIN [Suspect]
     Active Substance: INSULIN NOS
     Dosage: 900 IU, UNK
  3. GLIMEPIRIDE. [Suspect]
     Active Substance: GLIMEPIRIDE
     Dosage: 60 DF, UNK

REACTIONS (6)
  - Intentional product misuse [Unknown]
  - Toxicity to various agents [Recovered/Resolved]
  - Hypoglycaemia [Recovered/Resolved]
  - Loss of consciousness [Recovered/Resolved]
  - Overdose [Unknown]
  - Suicide attempt [Recovered/Resolved]
